FAERS Safety Report 7521036-8 (Version None)
Quarter: 2011Q2

REPORT INFORMATION
  Report Type: 
  Country: None (occurrence: None)
  Receive Date: 20110603
  Receipt Date: 20101203
  Transmission Date: 20111010
  Serious: Yes (Other)
  Sender: FDA-Public Use
  Company Number: CA-BAYER-201041934NA

PATIENT
  Age: 32 Year
  Sex: Female

DRUGS (3)
  1. VENTOLIN [Concomitant]
     Indication: ASTHMA EXERCISE INDUCED
  2. MIRENA [Suspect]
     Indication: CONTRACEPTION
     Dosage: CONTINUOUS
     Route: 015
     Dates: start: 20080101
  3. CITALOPRAM HYDROBROMIDE [Concomitant]
     Indication: SINUSITIS

REACTIONS (6)
  - SINUSITIS [None]
  - OVARIAN CYST [None]
  - AMENORRHOEA [None]
  - MYALGIA [None]
  - CARDIOLIPIN ANTIBODY POSITIVE [None]
  - UTERINE TENDERNESS [None]
